FAERS Safety Report 13676866 (Version 2)
Quarter: 2017Q3

REPORT INFORMATION
  Report Type: Spontaneous
  Country: IT (occurrence: IT)
  Receive Date: 20170622
  Receipt Date: 20170705
  Transmission Date: 20171127
  Serious: Yes (Other)
  Sender: FDA-Public Use
  Company Number: IT-ACCORD-052791

PATIENT
  Age: 54 Year
  Sex: Female

DRUGS (7)
  1. TAMOXIFEN [Suspect]
     Active Substance: TAMOXIFEN
     Indication: PRODUCT USED FOR UNKNOWN INDICATION
     Route: 048
     Dates: start: 2005
  2. EPIRUBICIN [Suspect]
     Active Substance: EPIRUBICIN
     Indication: INTRADUCTAL PROLIFERATIVE BREAST LESION
     Dosage: FEC 50 (6 CYCLES)
     Dates: start: 2005
  3. FULVESTRANT. [Suspect]
     Active Substance: FULVESTRANT
     Indication: PRODUCT USED FOR UNKNOWN INDICATION
     Route: 030
  4. AROMASIN [Suspect]
     Active Substance: EXEMESTANE
     Indication: INTRADUCTAL PROLIFERATIVE BREAST LESION
  5. CYCLOPHOSPHAMIDE/CYCLOPHOSPHAMIDE MONOHYDRATE [Suspect]
     Active Substance: CYCLOPHOSPHAMIDE
     Indication: INTRADUCTAL PROLIFERATIVE BREAST LESION
     Dosage: FEC 50 (6 CYCLES)
     Dates: start: 2005
  6. FLUOROURACIL. [Suspect]
     Active Substance: FLUOROURACIL
     Indication: INTRADUCTAL PROLIFERATIVE BREAST LESION
     Dosage: FEC 50 (6 CYCLES)
     Dates: start: 2005
  7. ENANTONE - TAKEDA [Suspect]
     Active Substance: LEUPROLIDE ACETATE
     Indication: PRODUCT USED FOR UNKNOWN INDICATION
     Dates: start: 2005

REACTIONS (13)
  - Anger [None]
  - Ovarian enlargement [None]
  - Metastases to liver [None]
  - Metastases to spine [None]
  - Malignant neoplasm progression [Unknown]
  - Endocrine disorder [None]
  - Renal impairment [None]
  - Ovarian cyst [None]
  - Metastases to ovary [None]
  - Metastases to peritoneum [None]
  - Endometrial thickening [None]
  - Feeling abnormal [None]
  - Intraductal proliferative breast lesion [None]

NARRATIVE: CASE EVENT DATE: 201311
